FAERS Safety Report 13785558 (Version 1)
Quarter: 2017Q3

REPORT INFORMATION
  Report Type: Spontaneous
  Country: US (occurrence: US)
  Receive Date: 20170724
  Receipt Date: 20170724
  Transmission Date: 20171127
  Serious: Yes (Life-Threatening)
  Sender: FDA-Public Use
  Company Number: None

PATIENT
  Age: 70 Year
  Sex: Female
  Weight: 40.95 kg

DRUGS (1)
  1. OLMESARTIN [Suspect]
     Active Substance: OLMESARTAN
     Indication: HYPERTENSION
     Dosage: ?          OTHER DOSE:MG;?DAILY ORAL
     Route: 048

REACTIONS (3)
  - Weight decreased [None]
  - Malabsorption [None]
  - Diarrhoea [None]

NARRATIVE: CASE EVENT DATE: 20170629
